FAERS Safety Report 18051239 (Version 2)
Quarter: 2020Q3

REPORT INFORMATION
  Report Type: Spontaneous
  Country: CA (occurrence: CA)
  Receive Date: 20200721
  Receipt Date: 20200804
  Transmission Date: 20201103
  Serious: Yes (Death, Other)
  Sender: FDA-Public Use
  Company Number: CA-BAXTER-2020BAX014462

PATIENT
  Age: 17 Year
  Sex: Female

DRUGS (18)
  1. HEPARIN SODIUM AND 0.9% SODIUM CHLORIDE INJECTION [Suspect]
     Active Substance: HEPARIN SODIUM\SODIUM CHLORIDE
     Dosage: HEPARIN BOLUS INCREASED TO 13 U/K/H
     Route: 065
     Dates: start: 20200626
  2. HEPARIN SODIUM AND 0.9% SODIUM CHLORIDE INJECTION [Suspect]
     Active Substance: HEPARIN SODIUM\SODIUM CHLORIDE
     Dosage: DROP HEPARIN TO 8 U/K/H
     Route: 065
     Dates: start: 20200625
  3. HEPARIN SODIUM AND 0.9% SODIUM CHLORIDE INJECTION [Suspect]
     Active Substance: HEPARIN SODIUM\SODIUM CHLORIDE
     Dosage: BOLUS HEPARIN
     Route: 040
     Dates: start: 20200625
  4. HEPARIN SODIUM AND 0.9% SODIUM CHLORIDE INJECTION [Suspect]
     Active Substance: HEPARIN SODIUM\SODIUM CHLORIDE
     Dosage: DROP HEPARIN TO 7 U/KG/H
     Route: 065
     Dates: start: 20200625
  5. HEPARIN SODIUM AND 0.9% SODIUM CHLORIDE INJECTION [Suspect]
     Active Substance: HEPARIN SODIUM\SODIUM CHLORIDE
     Dosage: HEPARIN BOLUS
     Route: 040
     Dates: start: 20200625
  6. HEPARIN SODIUM AND 0.9% SODIUM CHLORIDE INJECTION [Suspect]
     Active Substance: HEPARIN SODIUM\SODIUM CHLORIDE
     Route: 065
     Dates: start: 20200624
  7. HEPARIN SODIUM AND 0.9% SODIUM CHLORIDE INJECTION [Suspect]
     Active Substance: HEPARIN SODIUM\SODIUM CHLORIDE
     Dosage: ANOTHER BOLUS GIVEN
     Route: 040
     Dates: start: 20200625
  8. HEPARIN SODIUM AND 0.9% SODIUM CHLORIDE INJECTION [Suspect]
     Active Substance: HEPARIN SODIUM\SODIUM CHLORIDE
     Dosage: BROUGHT TO 8 U/K/H
     Route: 065
     Dates: start: 20200625
  9. HEPARIN SODIUM AND 0.9% SODIUM CHLORIDE INJECTION [Suspect]
     Active Substance: HEPARIN SODIUM\SODIUM CHLORIDE
     Dosage: DROP HEPARIN TO 6 U/K/H
     Route: 065
     Dates: start: 20200625
  10. HEPARIN SODIUM AND 0.9% SODIUM CHLORIDE INJECTION [Suspect]
     Active Substance: HEPARIN SODIUM\SODIUM CHLORIDE
     Dosage: HEPARIN TO 16U/K/H
     Route: 065
     Dates: start: 20200626
  11. HEPARIN SODIUM AND 0.9% SODIUM CHLORIDE INJECTION [Suspect]
     Active Substance: HEPARIN SODIUM\SODIUM CHLORIDE
     Dosage: 9 UNITS/K/H
     Route: 065
     Dates: start: 20200625
  12. HEPARIN SODIUM AND 0.9% SODIUM CHLORIDE INJECTION [Suspect]
     Active Substance: HEPARIN SODIUM\SODIUM CHLORIDE
     Dosage: BOLUS GIVEN
     Route: 040
     Dates: start: 20200626
  13. HEPARIN SODIUM AND 0.9% SODIUM CHLORIDE INJECTION [Suspect]
     Active Substance: HEPARIN SODIUM\SODIUM CHLORIDE
     Dosage: INCREASED HEPARIN TO 10 U/K/H
     Route: 065
     Dates: start: 20200625
  14. HEPARIN SODIUM AND 0.9% SODIUM CHLORIDE INJECTION [Suspect]
     Active Substance: HEPARIN SODIUM\SODIUM CHLORIDE
     Dosage: HEPARIN TO 11 U/K/H
     Route: 065
     Dates: start: 20200625
  15. HEPARIN SODIUM AND 0.9% SODIUM CHLORIDE INJECTION [Suspect]
     Active Substance: HEPARIN SODIUM\SODIUM CHLORIDE
     Dosage: 12 UNITS HEPARIN/K/H
     Route: 065
     Dates: start: 20200625
  16. HEPARIN SODIUM AND 0.9% SODIUM CHLORIDE INJECTION [Suspect]
     Active Substance: HEPARIN SODIUM\SODIUM CHLORIDE
     Dosage: HEPARIN BOLUS
     Route: 040
     Dates: start: 20200626
  17. HEPARIN SODIUM AND 0.9% SODIUM CHLORIDE INJECTION [Suspect]
     Active Substance: HEPARIN SODIUM\SODIUM CHLORIDE
     Dosage: HEPARIN UP TO 14U/K/H BOLUS GIVEN
     Route: 040
     Dates: start: 20200626
  18. HEPARIN SODIUM AND 0.9% SODIUM CHLORIDE INJECTION [Suspect]
     Active Substance: HEPARIN SODIUM\SODIUM CHLORIDE
     Indication: PRODUCT USED FOR UNKNOWN INDICATION
     Dosage: DECREASE HEPARIN TO 9 UNITS/KG/H
     Route: 065
     Dates: start: 20200625

REACTIONS (9)
  - Death [Fatal]
  - Haemorrhage [Unknown]
  - Disease progression [Unknown]
  - Sepsis [Unknown]
  - Product leakage [Unknown]
  - General physical health deterioration [Unknown]
  - Coagulation time shortened [Unknown]
  - Haemoglobin increased [Unknown]
  - Device breakage [Unknown]

NARRATIVE: CASE EVENT DATE: 20200625
